FAERS Safety Report 19413355 (Version 1)
Quarter: 2021Q2

REPORT INFORMATION
  Report Type: Spontaneous
  Country: PL (occurrence: PL)
  Receive Date: 20210615
  Receipt Date: 20210615
  Transmission Date: 20210717
  Serious: Yes (Other)
  Sender: FDA-Public Use
  Company Number: PL-AUROBINDO-AUR-APL-2021-024536

PATIENT
  Age: 56 Year
  Sex: Female

DRUGS (3)
  1. ZYPADHERA [Suspect]
     Active Substance: OLANZAPINE PAMOATE
     Dosage: 405 MILLIGRAM, EVERY WEEK(405 MG, WEEKLY (1/W))
     Route: 065
     Dates: start: 2020
  2. ZYPADHERA [Suspect]
     Active Substance: OLANZAPINE PAMOATE
     Indication: PRODUCT USED FOR UNKNOWN INDICATION
     Dosage: 405 MILLIGRAM(405 MG, WEEKLY (1/W)
     Route: 065
  3. OLANZAPINE. [Suspect]
     Active Substance: OLANZAPINE
     Indication: PRODUCT USED FOR UNKNOWN INDICATION
     Dosage: 10 MILLIGRAM, ONCE A DAY(10 MG, EACH EVENING)
     Route: 048

REACTIONS (10)
  - Dry mouth [Unknown]
  - Overdose [Unknown]
  - Dementia [Unknown]
  - Cerebral disorder [Unknown]
  - Head discomfort [Unknown]
  - Back pain [Unknown]
  - Hyperkeratosis [Unknown]
  - Dry skin [Unknown]
  - Oliguria [Unknown]
  - Eczema [Unknown]

NARRATIVE: CASE EVENT DATE: 202103
